FAERS Safety Report 8336863-7 (Version None)
Quarter: 2012Q2

REPORT INFORMATION
  Report Type: 
  Country: None (occurrence: None)
  Receive Date: 20120501
  Receipt Date: 20120416
  Transmission Date: 20120825
  Serious: Yes (Other)
  Sender: FDA-Public Use
  Company Number: US-1191663

PATIENT
  Age: 70 Year
  Sex: Male

DRUGS (6)
  1. DORZOLAMIDE HCL AND TIMOLOL MALEATE [Concomitant]
  2. PREDNISOLONE ACETATE [Suspect]
     Indication: POSTOPERATIVE CARE
     Dosage: (8 TIMES PER DAY FOR THE FIRST WEEK OPHTHALMIC), (4 TIMES PER DAY FOR THE FIRST MONTH AND SLOWLY TAP
     Route: 047
  3. VANCOMYCIN [Concomitant]
  4. VIGAMOX [Concomitant]
  5. CYCLOSPORINE [Concomitant]
  6. GENTEAL [Concomitant]

REACTIONS (4)
  - MACULAR FIBROSIS [None]
  - KERATITIS FUNGAL [None]
  - CORNEAL SCAR [None]
  - INTRAOCULAR PRESSURE INCREASED [None]
